FAERS Safety Report 10973665 (Version 1)
Quarter: 2015Q1

REPORT INFORMATION
  Report Type: Spontaneous
  Country: US (occurrence: None)
  Receive Date: 20150331
  Receipt Date: 20150331
  Transmission Date: 20150721
  Serious: Yes (Life-Threatening, Hospitalization, Disabling)
  Sender: FDA-Public Use
  Company Number: None

PATIENT
  Age: 68 Year
  Weight: 65.77 kg

DRUGS (2)
  1. LORAZEPAM. [Suspect]
     Active Substance: LORAZEPAM
     Dosage: 4 PILLS
     Route: 048
  2. LEVOTROXIN [Concomitant]

REACTIONS (12)
  - Limb injury [None]
  - Bone disorder [None]
  - Balance disorder [None]
  - Joint injury [None]
  - Nightmare [None]
  - Scar [None]
  - Quality of life decreased [None]
  - Fall [None]
  - Eye injury [None]
  - Loss of consciousness [None]
  - Withdrawal syndrome [None]
  - Abasia [None]
